FAERS Safety Report 25076256 (Version 3)
Quarter: 2025Q1

REPORT INFORMATION
  Report Type: Spontaneous
  Country: FR (occurrence: FR)
  Receive Date: 20250313
  Receipt Date: 20250324
  Transmission Date: 20250409
  Serious: Yes (Hospitalization, Other)
  Sender: ORGANON
  Company Number: FR-ORGANON-O2503FRA000866

PATIENT
  Age: 44 Year
  Sex: Male

DRUGS (2)
  1. BETAMETHASONE DIPROPIONATE\BETAMETHASONE SODIUM PHOSPHATE [Suspect]
     Active Substance: BETAMETHASONE DIPROPIONATE\BETAMETHASONE SODIUM PHOSPHATE
  2. BETAMETHASONE DIPROPIONATE\BETAMETHASONE SODIUM PHOSPHATE [Suspect]
     Active Substance: BETAMETHASONE DIPROPIONATE\BETAMETHASONE SODIUM PHOSPHATE

REACTIONS (7)
  - Abdominal pain upper [Unknown]
  - Traumatic pancreatitis [Unknown]
  - Accident [Unknown]
  - Bile duct stone [Unknown]
  - Transaminases increased [Recovering/Resolving]
  - Injection site extravasation [Unknown]
  - Injection site extravasation [Unknown]
